FAERS Safety Report 7931824-1 (Version None)
Quarter: 2011Q4

REPORT INFORMATION
  Report Type: 
  Country: None (occurrence: None)
  Receive Date: 20111121
  Receipt Date: 20111120
  Transmission Date: 20120403
  Serious: Yes (Other)
  Sender: FDA-Public Use
  Company Number: US-PFIZER INC-2011283753

PATIENT
  Sex: Male
  Weight: 168.7 kg

DRUGS (4)
  1. CYMBALTA [Concomitant]
     Indication: DEPRESSION
  2. CYMBALTA [Concomitant]
     Indication: POST-TRAUMATIC STRESS DISORDER
     Dosage: UNK
  3. LYRICA [Suspect]
     Indication: PAIN
     Dosage: 150 MG, 3X/DAY
     Route: 048
     Dates: start: 20080101
  4. CYMBALTA [Concomitant]
     Indication: ANXIETY

REACTIONS (4)
  - WEIGHT INCREASED [None]
  - OXYGEN SATURATION DECREASED [None]
  - DYSPNOEA [None]
  - PULMONARY HYPERTENSION [None]
